FAERS Safety Report 8943397 (Version 1)
Quarter: 2012Q4

REPORT INFORMATION
  Report Type: 
  Country: US (occurrence: US)
  Receive Date: 20121204
  Receipt Date: 20121204
  Transmission Date: 20130627
  Serious: Yes (Congenital Anomaly, Other)
  Sender: FDA-Public Use
  Company Number: US-PFIZER INC-2012299260

PATIENT
  Age: 1 Day
  Sex: Female
  Weight: 1.8 kg

DRUGS (18)
  1. ZOLOFT [Suspect]
     Dosage: 150 mg, 1x/day
     Route: 064
     Dates: start: 20091007
  2. ZOLOFT [Suspect]
     Dosage: 200 mg, 1x/day
     Route: 064
     Dates: start: 20100113
  3. ZOLOFT [Suspect]
     Dosage: 100 mg, 1x/day
     Route: 064
     Dates: start: 20100504
  4. ABILIFY [Concomitant]
     Dosage: 10 mg, 1x/day
     Route: 064
     Dates: start: 20090914
  5. ABILIFY [Concomitant]
     Dosage: 20 mg, 1x/day
     Route: 064
     Dates: start: 20100227
  6. TOPAMAX [Concomitant]
     Dosage: 100 mg, 1x/day
     Route: 064
     Dates: start: 20091007
  7. CEFTIN [Concomitant]
     Dosage: 250 mg, 2x/day
     Route: 064
     Dates: start: 20091007
  8. ATIVAN [Concomitant]
     Dosage: 1 mg, 1x/day, bed time
     Route: 064
     Dates: start: 20091007
  9. TOPIRAMATE [Concomitant]
     Dosage: 100 mg, 1x/day, bed time
     Route: 064
     Dates: start: 20091016
  10. SERTRALINE [Concomitant]
     Dosage: 150 mg, 1x/day
     Route: 064
     Dates: start: 20091016
  11. PRENATAL VITAMINS [Concomitant]
     Dosage: UNK
     Route: 064
     Dates: start: 20100107
  12. ZOFRAN [Concomitant]
     Indication: NAUSEA
     Dosage: 4 mg, UNK
     Route: 064
     Dates: start: 20100505
  13. CELESTONE [Concomitant]
     Dosage: 12.5mg/2.1 ml
     Route: 064
     Dates: start: 20100505
  14. TERBUTALINE [Concomitant]
     Dosage: 0.25 mg, UNK
     Route: 064
     Dates: start: 20100505
  15. BENADRYL [Concomitant]
     Dosage: 50 mg, 1x/day, bed time
     Route: 064
     Dates: start: 20100505
  16. TYLENOL [Concomitant]
     Dosage: UNK
     Route: 064
     Dates: start: 20091229
  17. COLACE [Concomitant]
     Dosage: 100 mg, 2x/day
     Route: 064
     Dates: start: 20100505
  18. SIMETHICONE [Concomitant]
     Dosage: 80 mg, 3x/day
     Route: 064
     Dates: start: 20100505

REACTIONS (14)
  - Maternal exposure timing unspecified [Unknown]
  - Pulmonary artery stenosis congenital [Unknown]
  - Neonatal respiratory distress syndrome [Unknown]
  - Tricuspid valve incompetence [Unknown]
  - Mitral valve incompetence [Recovered/Resolved]
  - Congenital pulmonary hypertension [Unknown]
  - Hypoplastic right heart syndrome [Unknown]
  - Patent ductus arteriosus [Unknown]
  - Congenital aortic valve incompetence [Unknown]
  - Right atrial dilatation [Unknown]
  - Cerebral haemorrhage neonatal [Unknown]
  - Atrial septal defect [Unknown]
  - Right ventricular hypertrophy [Unknown]
  - Atrial septal defect [Unknown]
